FAERS Safety Report 7927154 (Version 5)
Quarter: 2012Q4

REPORT INFORMATION
  Report Type: 
  Country: US (occurrence: US)
  Receive Date: 20110502
  Receipt Date: 20121205
  Transmission Date: 20130627
  Serious: Yes (Hospitalization, Other)
  Sender: FDA-Public Use
  Company Number: US-ASTRAZENECA-2010SE38769

PATIENT
  Age: 56 Year
  Sex: Female
  Weight: 77.1 kg

DRUGS (39)
  1. RHINOCORT AQUA [Suspect]
     Route: 045
  2. NEXIUM [Suspect]
     Indication: GASTROOESOPHAGEAL REFLUX DISEASE
     Route: 048
  3. NEXIUM [Suspect]
     Indication: GASTROOESOPHAGEAL REFLUX DISEASE
     Route: 048
  4. METOPROLOL SUCCINATE [Suspect]
     Route: 048
  5. ACIPHEX [Concomitant]
  6. NADOLOL [Concomitant]
     Indication: BLOOD PRESSURE ABNORMAL
     Dates: start: 1996
  7. NADOLOL [Concomitant]
     Indication: MITRAL VALVE PROLAPSE
     Dates: start: 1996
  8. NADOLOL [Concomitant]
     Indication: HYPERTENSION
     Dates: start: 1996
  9. GUAIFENESIN [Concomitant]
     Indication: ASTHMA
     Dates: start: 2008
  10. GUAIFENESIN [Concomitant]
     Indication: INCREASED UPPER AIRWAY SECRETION
     Dates: start: 2008
  11. GUAIFENESIN [Concomitant]
     Indication: ASTHMA
     Dosage: ONE - FIVE TABLETS DAILY
  12. GUAIFENESIN [Concomitant]
     Indication: INCREASED UPPER AIRWAY SECRETION
     Dosage: ONE - FIVE TABLETS DAILY
  13. ASPIRIN [Concomitant]
     Indication: CEREBROVASCULAR ACCIDENT
     Dates: start: 201204
  14. ASPIRIN [Concomitant]
     Indication: MITRAL VALVE PROLAPSE
     Dates: start: 201204
  15. ASPIRIN [Concomitant]
     Indication: HYPERTENSION
     Dates: start: 201204
  16. ASPIRIN [Concomitant]
     Indication: CEREBROVASCULAR ACCIDENT
     Dosage: FOUR BABY DAILY
  17. ASPIRIN [Concomitant]
     Indication: MITRAL VALVE PROLAPSE
     Dosage: FOUR BABY DAILY
  18. ASPIRIN [Concomitant]
     Indication: HYPERTENSION
     Dosage: FOUR BABY DAILY
  19. ZETIA [Concomitant]
     Indication: BLOOD CHLORIDE ABNORMAL
  20. ADVAIR [Concomitant]
     Indication: ASTHMA
     Dosage: 500/50 MCG ONE PUFF TWO TIMES DAILY
  21. ALBUTEROL [Concomitant]
     Indication: ASTHMA
     Dosage: 90 MCG, TWO PUFFS / AS NEEDED
  22. ALBUTEROL SULPHATE [Concomitant]
     Indication: ASTHMA
     Route: 055
  23. ALBUTEROL SULPHATE [Concomitant]
     Indication: ASTHMA
     Route: 055
  24. RESTASIS [Concomitant]
     Indication: DRY EYE
  25. VERAMYST [Concomitant]
     Indication: RHINITIS ALLERGIC
  26. VERAMYST [Concomitant]
     Indication: RHINITIS ALLERGIC
  27. PATANOL [Concomitant]
     Indication: EYE ALLERGY
     Dosage: TWO DROPS AS NEEDED
  28. XYZAL [Concomitant]
  29. ZONATUSS [Concomitant]
     Indication: COUGH
  30. ZONATUSS [Concomitant]
     Indication: COUGH
  31. FIORICET [Concomitant]
     Indication: MIGRAINE
     Dosage: 50/325/40, 1DF , AS NEEDED
  32. HYDROMORPHEN [Concomitant]
     Indication: PAIN
  33. HYDROMORPHEN [Concomitant]
     Indication: PAIN
  34. VALTREX [Concomitant]
     Indication: HERPES VIRUS INFECTION
  35. VITAMIN B12 [Concomitant]
  36. VITAMIN B6 [Concomitant]
  37. MULTI VITAMIN WOMEN^S 50 PLUS [Concomitant]
  38. NAPROXEN [Concomitant]
     Indication: PAIN
  39. TYLENOL [Concomitant]
     Indication: PAIN

REACTIONS (11)
  - Cerebrovascular accident [Unknown]
  - Dyspepsia [Unknown]
  - Insomnia [Unknown]
  - Stress [Unknown]
  - Migraine [Unknown]
  - Diverticulitis [Unknown]
  - Aphagia [Unknown]
  - Headache [Unknown]
  - Drug dose omission [Unknown]
  - Drug effect decreased [Unknown]
  - Drug intolerance [Unknown]
